FAERS Safety Report 24366038 (Version 1)
Quarter: 2024Q3

REPORT INFORMATION
  Report Type: Spontaneous
  Country: US (occurrence: US)
  Receive Date: 20240926
  Receipt Date: 20240926
  Transmission Date: 20241017
  Serious: No
  Sender: PFIZER
  Company Number: US-PFIZER INC-PV202400124558

PATIENT
  Sex: Female

DRUGS (1)
  1. TIVDAK [Suspect]
     Active Substance: TISOTUMAB VEDOTIN-TFTV
     Dosage: 2 MG/KG, EVERY 3 WEEKS (2 MG/KG IV Q3 WEEKS)
     Route: 042

REACTIONS (2)
  - Vaginal fistula [Unknown]
  - Vaginal haemorrhage [Unknown]
